FAERS Safety Report 23770060 (Version 1)
Quarter: 2024Q2

REPORT INFORMATION
  Report Type: Spontaneous
  Country: SK (occurrence: SK)
  Receive Date: 20240422
  Receipt Date: 20240422
  Transmission Date: 20240716
  Serious: Yes (Other)
  Sender: FDA-Public Use
  Company Number: SK-002147023-NVSC2024SK079154

PATIENT

DRUGS (23)
  1. RUXOLITINIB [Suspect]
     Active Substance: RUXOLITINIB
     Indication: Splenomegaly
     Dosage: 5 MG, BID
     Route: 065
     Dates: start: 20220707, end: 20220915
  2. RUXOLITINIB [Suspect]
     Active Substance: RUXOLITINIB
     Dosage: 10 MG, BID
     Route: 065
     Dates: start: 20220916, end: 20221005
  3. RUXOLITINIB [Suspect]
     Active Substance: RUXOLITINIB
     Dosage: 15 MG, BID
     Route: 065
     Dates: start: 20221005
  4. RUXOLITINIB [Suspect]
     Active Substance: RUXOLITINIB
     Dosage: 15 MILLIGRAM, BID
     Route: 065
     Dates: start: 20230405, end: 20231025
  5. RUXOLITINIB [Suspect]
     Active Substance: RUXOLITINIB
     Dosage: 15 MILLIGRAM, BID
     Route: 065
     Dates: start: 20230504
  6. RUXOLITINIB [Suspect]
     Active Substance: RUXOLITINIB
     Dosage: 7.5 MILLIGRAM, BID
     Route: 065
     Dates: start: 20231026
  7. PREDNISONE [Concomitant]
     Active Substance: PREDNISONE
     Indication: Product used for unknown indication
     Dosage: 30 MG, QD
     Route: 048
     Dates: start: 20220525, end: 20220706
  8. PREDNISONE [Concomitant]
     Active Substance: PREDNISONE
     Dosage: 20 MG, QD
     Route: 048
     Dates: start: 20220707, end: 20221005
  9. PREDNISONE [Concomitant]
     Active Substance: PREDNISONE
     Dosage: 20 MG, QD
     Route: 048
     Dates: start: 20220916, end: 20220916
  10. PREDNISONE [Concomitant]
     Active Substance: PREDNISONE
     Dosage: 10 MG, QD
     Route: 048
     Dates: start: 20230405, end: 20230504
  11. PREDNISONE [Concomitant]
     Active Substance: PREDNISONE
     Dosage: 10 MG, QD (20X10 MG DAILY
     Route: 065
     Dates: start: 20221005
  12. EPO [ERYTHROPOIETIN] [Concomitant]
     Indication: Product used for unknown indication
     Dosage: UNK
     Route: 065
     Dates: start: 20220707, end: 20220916
  13. EPO [ERYTHROPOIETIN] [Concomitant]
     Dosage: UNK
     Route: 065
     Dates: start: 20220916, end: 20221005
  14. EPO [ERYTHROPOIETIN] [Concomitant]
     Dosage: UNK
     Route: 065
     Dates: start: 20221005
  15. EPO [ERYTHROPOIETIN] [Concomitant]
     Dosage: UNK
     Route: 065
     Dates: start: 20230504
  16. EPO [ERYTHROPOIETIN] [Concomitant]
     Dosage: UNK
     Route: 065
     Dates: start: 20231026
  17. FE [FERROUS GLYCINE SULFATE] [Concomitant]
     Indication: Product used for unknown indication
     Dosage: UNK
     Route: 048
     Dates: start: 20220916, end: 20221005
  18. DANAZOL [Concomitant]
     Active Substance: DANAZOL
     Indication: Product used for unknown indication
     Dosage: 200 MG
     Route: 065
     Dates: start: 20230504, end: 2023
  19. DANAZOL [Concomitant]
     Active Substance: DANAZOL
     Dosage: 400 MG
     Route: 065
     Dates: start: 20231026
  20. DEXAMETHASONE [Concomitant]
     Active Substance: DEXAMETHASONE
     Indication: Product used for unknown indication
     Dosage: 4 MG, QD
     Route: 048
     Dates: start: 20231026
  21. IMMUNE GLOBULIN NOS [Concomitant]
     Active Substance: IMMUNE GLOBULIN NOS
     Indication: Product used for unknown indication
     Dosage: 0.4 MG/KG
     Route: 042
     Dates: start: 20230914, end: 20230918
  22. HUMAN RED BLOOD CELL [Concomitant]
     Active Substance: HUMAN RED BLOOD CELL
     Indication: Product used for unknown indication
     Dosage: UNK (TRANSFUSIONS OF RESUSPENDED ERYTHROCYTE CONCENTRATES)
     Route: 065
     Dates: start: 20220707, end: 20220916
  23. HUMAN RED BLOOD CELL [Concomitant]
     Active Substance: HUMAN RED BLOOD CELL
     Dosage: UNK
     Route: 065
     Dates: start: 20220916, end: 20221005

REACTIONS (7)
  - Dental caries [Unknown]
  - Diverticulum intestinal [Unknown]
  - Gastrointestinal haemorrhage [Unknown]
  - Gout [Unknown]
  - Hyperuricaemia [Unknown]
  - Drug ineffective [Not Recovered/Not Resolved]
  - Submandibular abscess [Unknown]
